FAERS Safety Report 5736819-4 (Version None)
Quarter: 2008Q2

REPORT INFORMATION
  Report Type: 
  Country: None (occurrence: None)
  Receive Date: 20080508
  Receipt Date: 20080423
  Transmission Date: 20081010
  Serious: Yes (Death)
  Sender: FDA-Public Use
  Company Number: TAP2008Q00305

PATIENT
  Age: 73 Year
  Sex: Male

DRUGS (4)
  1. LUPRON DEPOT [Suspect]
     Indication: PROSTATE CANCER
     Dosage: 22.5 MG (22.5 MG, 1 IN 3 M), INTRAMUSCULAR
     Route: 030
     Dates: start: 20060928, end: 20071214
  2. NOVO-FOSINOPRIL SODIUM          (FOSINOPRIL SODIUM) [Concomitant]
  3. ASPIRIN [Concomitant]
  4. VITAMIN D [Concomitant]

REACTIONS (3)
  - HYPERTENSION [None]
  - MYOCARDIAL INFARCTION [None]
  - SUDDEN CARDIAC DEATH [None]
